FAERS Safety Report 5318243-1 (Version None)
Quarter: 2007Q2

REPORT INFORMATION
  Report Type: 
  Country: None (occurrence: None)
  Receive Date: 20070507
  Receipt Date: 20070425
  Transmission Date: 20071010
  Serious: Yes (Other)
  Sender: FDA-Public Use
  Company Number: US-PFIZER INC-2007033508

PATIENT
  Sex: Male
  Weight: 102.27 kg

DRUGS (12)
  1. TIKOSYN [Suspect]
     Indication: ATRIAL FIBRILLATION
  2. COREG [Concomitant]
  3. TERAZOSIN HCL [Concomitant]
     Indication: HYPERTENSION
  4. ENALAPRIL [Concomitant]
     Indication: HYPERTENSION
  5. CARDIZEM [Concomitant]
     Indication: HYPERTENSION
  6. FUROSEMIDE [Concomitant]
     Indication: CARDIAC FAILURE CONGESTIVE
  7. MONTELUKAST SODIUM [Concomitant]
  8. K-DUR 10 [Concomitant]
     Indication: CARDIAC FAILURE CONGESTIVE
  9. CUMADIN [Concomitant]
  10. INSULIN [Concomitant]
     Indication: DIABETES MELLITUS
  11. GLUCOPHAGE [Concomitant]
     Indication: DIABETES MELLITUS
  12. LIPITOR [Concomitant]

REACTIONS (1)
  - ATRIAL FIBRILLATION [None]
